FAERS Safety Report 5991702-4 (Version None)
Quarter: 2008Q4

REPORT INFORMATION
  Report Type: 
  Country: None (occurrence: None)
  Receive Date: 20081202
  Receipt Date: 20071015
  Transmission Date: 20090506
  Serious: Yes (Other)
  Sender: FDA-Public Use
  Company Number: WAES 0708USA00297

PATIENT
  Age: 56 Year
  Sex: Female

DRUGS (3)
  1. FOSAMAX [Suspect]
     Indication: OSTEOPOROSIS
     Dosage: 70 MG/PO ; 70 MG/PO
     Route: 048
     Dates: start: 20040320, end: 20040620
  2. FOSAMAX [Suspect]
     Indication: OSTEOPOROSIS
     Dosage: 70 MG/PO ; 70 MG/PO
     Route: 048
     Dates: start: 20060411, end: 20060705
  3. FOSAMAX PLUS D [Suspect]
     Indication: OSTEOPOROSIS
     Dosage: 70 MG
     Dates: start: 20060803, end: 20060803

REACTIONS (12)
  - CONTUSION [None]
  - DIZZINESS [None]
  - EMOTIONAL DISORDER [None]
  - FALL [None]
  - HYPERSENSITIVITY [None]
  - LOSS OF CONSCIOUSNESS [None]
  - OSTEOARTHRITIS [None]
  - OSTEONECROSIS [None]
  - OTITIS MEDIA [None]
  - PARAESTHESIA [None]
  - SINUSITIS [None]
  - TRANSIENT ISCHAEMIC ATTACK [None]
